FAERS Safety Report 14689290 (Version 1)
Quarter: 2018Q1

REPORT INFORMATION
  Report Type: Spontaneous
  Country: US (occurrence: US)
  Receive Date: 20180327
  Receipt Date: 20180327
  Transmission Date: 20180509
  Serious: Yes (Other)
  Sender: FDA-Public Use
  Company Number: None

PATIENT
  Age: 12 Year
  Sex: Male
  Weight: 53.55 kg

DRUGS (1)
  1. BANANA BOAT SPORT PERFORMANCE WITH POWERSTAY TECHNOLOGY BROAD SPECTRUM SPF50 [Suspect]
     Active Substance: AVOBENZONE\HOMOSALATE\OCTISALATE\OCTOCRYLENE
     Indication: PROPHYLAXIS AGAINST SOLAR RADIATION
     Dosage: ?          QUANTITY:1 APPLICATION;?
     Route: 061
     Dates: start: 20180325, end: 20180325

REACTIONS (4)
  - Hypersensitivity [None]
  - Burning sensation [None]
  - Thermal burn [None]
  - Blister [None]

NARRATIVE: CASE EVENT DATE: 20180326
